FAERS Safety Report 16570537 (Version 1)
Quarter: 2019Q3

REPORT INFORMATION
  Report Type: Spontaneous
  Country: JP (occurrence: JP)
  Receive Date: 20190715
  Receipt Date: 20190715
  Transmission Date: 20191004
  Serious: Yes (Death)
  Sender: FDA-Public Use
  Company Number: JP-ACTELION-A-CH2019-192769

PATIENT
  Age: 70 Year
  Sex: Male

DRUGS (5)
  1. BOSENTAN. [Suspect]
     Active Substance: BOSENTAN
     Indication: PULMONARY HYPERTENSION
     Route: 048
  2. SILDENAFIL. [Concomitant]
     Active Substance: SILDENAFIL
  3. WARFARIN [Concomitant]
     Active Substance: WARFARIN
  4. BERAPROST [Concomitant]
     Active Substance: BERAPROST
  5. OXYGEN. [Concomitant]
     Active Substance: OXYGEN

REACTIONS (1)
  - Interstitial lung disease [Fatal]
